FAERS Safety Report 20899499 (Version 1)
Quarter: 2022Q2

REPORT INFORMATION
  Report Type: Spontaneous
  Country: US (occurrence: US)
  Receive Date: 20220601
  Receipt Date: 20220601
  Transmission Date: 20220721
  Serious: Yes (Hospitalization, Other)
  Sender: FDA-Public Use
  Company Number: US-BRISTOL-MYERS SQUIBB COMPANY-2022-045949

PATIENT
  Age: 70 Year
  Sex: Female

DRUGS (1)
  1. ELIQUIS [Suspect]
     Active Substance: APIXABAN
     Indication: Product used for unknown indication
     Route: 065

REACTIONS (7)
  - Malaise [Unknown]
  - Asthenia [Unknown]
  - Renal impairment [Unknown]
  - Peripheral swelling [Unknown]
  - Pain in extremity [Unknown]
  - Vomiting [Unknown]
  - Cough [Unknown]

NARRATIVE: CASE EVENT DATE: 20220520
